FAERS Safety Report 24916283 (Version 2)
Quarter: 2025Q1

REPORT INFORMATION
  Report Type: Spontaneous
  Country: IN (occurrence: IN)
  Receive Date: 20250203
  Receipt Date: 20250210
  Transmission Date: 20250408
  Serious: Yes (Death, Life-Threatening, Hospitalization, Other)
  Sender: PFIZER
  Company Number: IN-PFIZER INC-PV202500012126

PATIENT
  Age: 51 Year
  Sex: Male

DRUGS (8)
  1. AZITHROMYCIN [Suspect]
     Active Substance: AZITHROMYCIN
     Indication: Typhoid fever
     Dosage: 500 MG, DAILY
  2. PREDNISOLONE [Suspect]
     Active Substance: PREDNISOLONE
     Indication: Rheumatoid arthritis
     Dosage: 8 MG, 2X/DAY (SINGLE DOSE)
  3. SULFASALAZINE [Suspect]
     Active Substance: SULFASALAZINE
     Indication: Rheumatoid arthritis
     Dosage: 500 MG, DAILY
  4. HYDROXYCHLOROQUINE [Suspect]
     Active Substance: HYDROXYCHLOROQUINE
     Indication: Rheumatoid arthritis
     Dosage: 200 MG, DAILY
  5. HYDROXYCHLOROQUINE [Suspect]
     Active Substance: HYDROXYCHLOROQUINE
     Dosage: 300 MG, DAILY (SINGLE DOSE)
  6. LEFLUNOMIDE [Suspect]
     Active Substance: LEFLUNOMIDE
     Indication: Rheumatoid arthritis
     Dosage: 10 MG, DAILY
  7. METHOTREXATE [Suspect]
     Active Substance: METHOTREXATE
     Indication: Rheumatoid arthritis
     Dosage: 8 MG ONCE WEEKLY (SINGLE DOSE)
  8. LOPERAMIDE [Concomitant]
     Active Substance: LOPERAMIDE
     Indication: Typhoid fever

REACTIONS (2)
  - Toxic epidermal necrolysis [Fatal]
  - Drug reaction with eosinophilia and systemic symptoms [Unknown]
